FAERS Safety Report 17539639 (Version 3)
Quarter: 2021Q4

REPORT INFORMATION
  Report Type: Spontaneous
  Country: US (occurrence: US)
  Receive Date: 20200313
  Receipt Date: 20211014
  Transmission Date: 20220303
  Serious: Yes (Other)
  Sender: FDA-Public Use
  Company Number: US-GILEAD-2020-0454513

PATIENT
  Age: 52 Year
  Sex: Male

DRUGS (2)
  1. ATRIPLA [Suspect]
     Active Substance: EFAVIRENZ\EMTRICITABINE\TENOFOVIR DISOPROXIL FUMARATE
     Indication: HIV infection
     Dosage: UNK
     Route: 048
     Dates: start: 20091110, end: 20161022
  2. DESCOVY [Concomitant]
     Active Substance: EMTRICITABINE\TENOFOVIR ALAFENAMIDE FUMARATE
     Dosage: UNK

REACTIONS (10)
  - Osteoporosis [Not Recovered/Not Resolved]
  - Thoracic vertebral fracture [Not Recovered/Not Resolved]
  - Multiple fractures [Unknown]
  - Osteopenia [Not Recovered/Not Resolved]
  - Bone density decreased [Unknown]
  - Emotional distress [Unknown]
  - Anhedonia [Unknown]
  - Economic problem [Unknown]
  - Pain [Unknown]
  - Anxiety [Unknown]

NARRATIVE: CASE EVENT DATE: 20100221
